FAERS Safety Report 7150675-1 (Version None)
Quarter: 2010Q4

REPORT INFORMATION
  Report Type: 
  Country: None (occurrence: None)
  Receive Date: 20101210
  Receipt Date: 20101129
  Transmission Date: 20110411
  Serious: Yes (Other)
  Sender: FDA-Public Use
  Company Number: US-SANOFI-AVENTIS-2010SA067198

PATIENT
  Age: 82 Year
  Sex: Male
  Weight: 102 kg

DRUGS (6)
  1. MULTAQ [Suspect]
     Indication: ATRIAL FIBRILLATION
     Route: 048
     Dates: start: 20101022, end: 20101029
  2. SIMVASTATIN [Concomitant]
  3. NITROGLYCERIN [Concomitant]
  4. METOPROLOL [Concomitant]
  5. COUMADIN [Concomitant]
     Indication: ATRIAL FIBRILLATION
  6. ASPIRIN [Concomitant]
     Indication: CORONARY ARTERY DISEASE

REACTIONS (8)
  - CARDIAC FAILURE [None]
  - CHEST DISCOMFORT [None]
  - DYSPNOEA [None]
  - FATIGUE [None]
  - GAIT DISTURBANCE [None]
  - MALAISE [None]
  - OEDEMA PERIPHERAL [None]
  - WEIGHT INCREASED [None]
